FAERS Safety Report 21054446 (Version 1)
Quarter: 2022Q3

REPORT INFORMATION
  Report Type: Spontaneous
  Country: US (occurrence: US)
  Receive Date: 20220707
  Receipt Date: 20220707
  Transmission Date: 20221027
  Serious: Yes (Other)
  Sender: FDA-Public Use
  Company Number: US-TEVA-2022-US-2052288

PATIENT
  Age: 18 Year
  Sex: Female

DRUGS (35)
  1. VALPROIC ACID [Suspect]
     Active Substance: VALPROIC ACID
     Indication: Mitochondrial DNA mutation
     Route: 065
  2. VALPROIC ACID [Suspect]
     Active Substance: VALPROIC ACID
     Indication: Ataxia
  3. VALPROIC ACID [Suspect]
     Active Substance: VALPROIC ACID
     Indication: Neuropathy peripheral
  4. VALPROIC ACID [Suspect]
     Active Substance: VALPROIC ACID
     Indication: Dysarthria
  5. VALPROIC ACID [Suspect]
     Active Substance: VALPROIC ACID
     Indication: Ophthalmoplegia
  6. PHENYTOIN [Suspect]
     Active Substance: PHENYTOIN
     Indication: Mitochondrial DNA mutation
     Route: 065
  7. PHENYTOIN [Suspect]
     Active Substance: PHENYTOIN
     Indication: Ataxia
  8. PHENYTOIN [Suspect]
     Active Substance: PHENYTOIN
     Indication: Neuropathy peripheral
  9. PHENYTOIN [Suspect]
     Active Substance: PHENYTOIN
     Indication: Dysarthria
  10. PHENYTOIN [Suspect]
     Active Substance: PHENYTOIN
     Indication: Ophthalmoplegia
  11. LEVETIRACETAM [Suspect]
     Active Substance: LEVETIRACETAM
     Indication: Mitochondrial DNA mutation
     Route: 065
  12. LEVETIRACETAM [Suspect]
     Active Substance: LEVETIRACETAM
     Indication: Ataxia
  13. LEVETIRACETAM [Suspect]
     Active Substance: LEVETIRACETAM
     Indication: Neuropathy peripheral
  14. LEVETIRACETAM [Suspect]
     Active Substance: LEVETIRACETAM
     Indication: Dysarthria
  15. LEVETIRACETAM [Suspect]
     Active Substance: LEVETIRACETAM
     Indication: Ophthalmoplegia
  16. TOPIRAMATE [Suspect]
     Active Substance: TOPIRAMATE
     Indication: Mitochondrial DNA mutation
     Route: 065
  17. TOPIRAMATE [Suspect]
     Active Substance: TOPIRAMATE
     Indication: Ataxia
  18. TOPIRAMATE [Suspect]
     Active Substance: TOPIRAMATE
     Indication: Neuropathy peripheral
  19. TOPIRAMATE [Suspect]
     Active Substance: TOPIRAMATE
     Indication: Dysarthria
  20. TOPIRAMATE [Suspect]
     Active Substance: TOPIRAMATE
     Indication: Ophthalmoplegia
  21. CLONAZEPAM [Suspect]
     Active Substance: CLONAZEPAM
     Indication: Mitochondrial DNA mutation
     Route: 065
  22. CLONAZEPAM [Suspect]
     Active Substance: CLONAZEPAM
     Indication: Ataxia
  23. CLONAZEPAM [Suspect]
     Active Substance: CLONAZEPAM
     Indication: Neuropathy peripheral
  24. CLONAZEPAM [Suspect]
     Active Substance: CLONAZEPAM
     Indication: Dysarthria
  25. CLONAZEPAM [Suspect]
     Active Substance: CLONAZEPAM
     Indication: Ophthalmoplegia
  26. LACOSAMIDE [Suspect]
     Active Substance: LACOSAMIDE
     Indication: Mitochondrial DNA mutation
     Route: 065
  27. LACOSAMIDE [Suspect]
     Active Substance: LACOSAMIDE
     Indication: Ataxia
  28. LACOSAMIDE [Suspect]
     Active Substance: LACOSAMIDE
     Indication: Neuropathy peripheral
  29. LACOSAMIDE [Suspect]
     Active Substance: LACOSAMIDE
     Indication: Dysarthria
  30. LACOSAMIDE [Suspect]
     Active Substance: LACOSAMIDE
     Indication: Ophthalmoplegia
  31. OXCARBAZEPINE [Suspect]
     Active Substance: OXCARBAZEPINE
     Indication: Mitochondrial DNA mutation
     Route: 065
  32. OXCARBAZEPINE [Suspect]
     Active Substance: OXCARBAZEPINE
     Indication: Ataxia
  33. OXCARBAZEPINE [Suspect]
     Active Substance: OXCARBAZEPINE
     Indication: Neuropathy peripheral
  34. OXCARBAZEPINE [Suspect]
     Active Substance: OXCARBAZEPINE
     Indication: Dysarthria
  35. OXCARBAZEPINE [Suspect]
     Active Substance: OXCARBAZEPINE
     Indication: Ophthalmoplegia

REACTIONS (4)
  - Hypertransaminasaemia [Unknown]
  - Ataxia [Unknown]
  - Sedation [Unknown]
  - Diplopia [Unknown]
